FAERS Safety Report 16989923 (Version 1)
Quarter: 2019Q4

REPORT INFORMATION
  Report Type: Spontaneous
  Country: US (occurrence: US)
  Receive Date: 20190920
  Receipt Date: 20190920
  Transmission Date: 20200122
  Serious: Yes (Disabling)
  Sender: FDA-Public Use
  Company Number: None

PATIENT
  Age: 83 Year
  Sex: Female
  Weight: 90.72 kg

DRUGS (1)
  1. PRAMIPEXOLE. [Suspect]
     Active Substance: PRAMIPEXOLE
     Route: 048
     Dates: start: 20160822, end: 20190217

REACTIONS (8)
  - Posture abnormal [None]
  - Fall [None]
  - Back pain [None]
  - Balance disorder [None]
  - Ligament sprain [None]
  - Contusion [None]
  - Walking aid user [None]
  - Peripheral swelling [None]
